FAERS Safety Report 7412094-X (Version None)
Quarter: 2011Q2

REPORT INFORMATION
  Report Type: 
  Country: None (occurrence: None)
  Receive Date: 20110413
  Receipt Date: 20110406
  Transmission Date: 20111010
  Serious: Yes (Other)
  Sender: FDA-Public Use
  Company Number: US-BAYER-2011-031595

PATIENT
  Age: 26 Year
  Sex: Female

DRUGS (1)
  1. YASMIN [Suspect]
     Dosage: UNK, QD
     Route: 048
     Dates: start: 20030601, end: 20040701

REACTIONS (6)
  - FEAR OF DEATH [None]
  - NERVOUSNESS [None]
  - DEPRESSION [None]
  - EMOTIONAL DISTRESS [None]
  - CHOLECYSTECTOMY [None]
  - INJURY [None]
